FAERS Safety Report 7077333-6 (Version None)
Quarter: 2010Q4

REPORT INFORMATION
  Report Type: 
  Country: None (occurrence: None)
  Receive Date: 20101101
  Receipt Date: 20101027
  Transmission Date: 20110411
  Serious: Yes (Other)
  Sender: FDA-Public Use
  Company Number: RU-AMGEN-QUU443670

PATIENT

DRUGS (2)
  1. MIMPARA [Suspect]
     Dosage: UNK UNK, UNK
     Route: 048
  2. MIMPARA [Suspect]
     Indication: HYPERPARATHYROIDISM

REACTIONS (3)
  - BLOOD CALCIUM DECREASED [None]
  - BLOOD PHOSPHORUS DECREASED [None]
  - CONVULSION [None]
